FAERS Safety Report 11072449 (Version 5)
Quarter: 2015Q4

REPORT INFORMATION
  Report Type: Spontaneous
  Country: US (occurrence: US)
  Receive Date: 20150428
  Receipt Date: 20151209
  Transmission Date: 20160304
  Serious: No
  Sender: FDA-Public Use
  Company Number: US-SHIRE-US201503723

PATIENT
  Sex: Female

DRUGS (2)
  1. LIALDA [Suspect]
     Active Substance: MESALAMINE
     Indication: COLITIS ULCERATIVE
     Dosage: UNK, UNKNOWN
     Route: 048
  2. LIALDA [Suspect]
     Active Substance: MESALAMINE
     Dosage: 2.4 G, 2X/DAY:BID
     Route: 048

REACTIONS (5)
  - Back pain [Unknown]
  - Drug ineffective [Unknown]
  - Fistula [Unknown]
  - Inappropriate schedule of drug administration [Unknown]
  - Malaise [Unknown]
